FAERS Safety Report 7488291-4 (Version None)
Quarter: 2011Q2

REPORT INFORMATION
  Report Type: 
  Country: None (occurrence: None)
  Receive Date: 20110518
  Receipt Date: 20110511
  Transmission Date: 20111010
  Serious: Yes (Other)
  Sender: FDA-Public Use
  Company Number: US-ABBOTT-11P-163-0722381-00

PATIENT
  Sex: Female
  Weight: 69.008 kg

DRUGS (7)
  1. LUPRON DEPOT [Suspect]
     Indication: ENDOMETRIOSIS
     Dosage: ONE INJECTION ONLY
     Route: 050
     Dates: start: 20110320, end: 20110320
  2. LYRICA [Suspect]
     Indication: PRODUCT USED FOR UNKNOWN INDICATION
  3. LAMICTAL [Concomitant]
     Indication: AFFECTIVE DISORDER
  4. SEROQUEL [Concomitant]
     Indication: OBSESSIVE-COMPULSIVE DISORDER
  5. VALIUM [Concomitant]
     Indication: PANIC ATTACK
  6. STOOL SOFTENER [Concomitant]
     Indication: PRODUCT USED FOR UNKNOWN INDICATION
  7. ZYRTEC-D 12 HOUR [Concomitant]
     Indication: HYPERSENSITIVITY

REACTIONS (12)
  - SOMNOLENCE [None]
  - DEHYDRATION [None]
  - CONSCIOUSNESS FLUCTUATING [None]
  - AMENORRHOEA [None]
  - PULSE ABSENT [None]
  - VISION BLURRED [None]
  - HOT FLUSH [None]
  - DISTURBANCE IN ATTENTION [None]
  - BLOOD PRESSURE DECREASED [None]
  - DIZZINESS [None]
  - LOSS OF CONSCIOUSNESS [None]
  - DYSARTHRIA [None]
